FAERS Safety Report 4461326-9 (Version None)
Quarter: 2004Q3

REPORT INFORMATION
  Report Type: 
  Country: None (occurrence: None)
  Receive Date: 20040920
  Receipt Date: 20040910
  Transmission Date: 20050211
  Serious: Yes (Other)
  Sender: FDA-Public Use
  Company Number: FRWYE017606SEP04

PATIENT
  Age: 5 Year
  Sex: Male

DRUGS (1)
  1. REFACTO [Suspect]
     Indication: FACTOR VIII DEFICIENCY
     Dosage: 70 IU/KG PER INJECTION; INTRAVENOUS
     Route: 042
     Dates: start: 20000101, end: 20040701

REACTIONS (3)
  - COAGULATION FACTOR VIII LEVEL DECREASED [None]
  - DRUG INEFFECTIVE [None]
  - HAEMARTHROSIS [None]
